FAERS Safety Report 8266909-6 (Version None)
Quarter: 2012Q2

REPORT INFORMATION
  Report Type: 
  Country: None (occurrence: None)
  Receive Date: 20120404
  Receipt Date: 20120404
  Transmission Date: 20120825
  Serious: Yes (Hospitalization)
  Sender: FDA-Public Use
  Company Number: None

PATIENT
  Sex: Female
  Weight: 60.1 kg

DRUGS (2)
  1. METHADONE HCL [Suspect]
     Indication: PAIN MANAGEMENT
     Dosage: 2.5MG EVERY 8 HOURS IV
     Route: 042
     Dates: start: 20120306
  2. METHADONE HCL [Suspect]
     Indication: HEAD AND NECK CANCER
     Dosage: 2.5MG EVERY 8 HOURS IV
     Route: 042
     Dates: start: 20120306

REACTIONS (1)
  - INCORRECT DOSE ADMINISTERED [None]
